FAERS Safety Report 18733773 (Version 1)
Quarter: 2021Q1

REPORT INFORMATION
  Report Type: Spontaneous
  Country: FR (occurrence: FR)
  Receive Date: 20210113
  Receipt Date: 20210113
  Transmission Date: 20210419
  Serious: Yes (Hospitalization)
  Sender: FDA-Public Use
  Company Number: FR-TEVA-2021-FR-1866944

PATIENT
  Age: 2 Year
  Sex: Male

DRUGS (11)
  1. TRECONDI [Suspect]
     Active Substance: TREOSULFAN
     Indication: BONE MARROW CONDITIONING REGIMEN
     Dosage: 730MG
     Route: 042
     Dates: start: 20201204, end: 20201206
  2. THIOTEPA. [Suspect]
     Active Substance: THIOTEPA
     Indication: BONE MARROW CONDITIONING REGIMEN
     Dosage: 1200MG
     Route: 042
     Dates: start: 20201208, end: 20201208
  3. CLAIRYG [Suspect]
     Active Substance: HUMAN IMMUNOGLOBULIN G
     Dosage: 2 DOSES
     Route: 042
     Dates: start: 20201209, end: 20201217
  4. FLUDARABINE (PHOSPHATE DE) [Suspect]
     Active Substance: FLUDARABINE PHOSPHATE
     Indication: BONE MARROW CONDITIONING REGIMEN
     Dosage: 30MG/M2
     Route: 042
     Dates: start: 20201203, end: 20201207
  5. URSOFALK, SOLUTION BUVABLE 50 MG/ML [Suspect]
     Active Substance: URSODIOL
     Indication: PROPHYLAXIS
     Route: 048
     Dates: start: 20201203
  6. GENTAMICINE [Suspect]
     Active Substance: GENTAMICIN
     Indication: INFECTION
     Route: 042
     Dates: start: 20201206
  7. METHOTREXATE. [Suspect]
     Active Substance: METHOTREXATE
     Indication: PROPHYLAXIS AGAINST TRANSPLANT REJECTION
     Dosage: 7.75MG
     Route: 042
  8. CEFTRIAXONE BASE [Suspect]
     Active Substance: CEFTRIAXONE
     Indication: URINARY TRACT INFECTION
     Route: 042
     Dates: start: 20201209
  9. COLIMYCINE [COLISTIMETHATE SODIUM] [Suspect]
     Active Substance: COLISTIMETHATE SODIUM
     Indication: INFECTION
     Route: 042
     Dates: start: 20201206
  10. DEFIBROTIDE 200 MG, SOLUTION A DILUER POUR PERFUSION [Suspect]
     Active Substance: DEFIBROTIDE (BOVINE)
     Route: 042
     Dates: start: 20201203
  11. VORICONAZOLE. [Concomitant]
     Active Substance: VORICONAZOLE
     Route: 042
     Dates: start: 20201213

REACTIONS (2)
  - Rash maculo-papular [Recovering/Resolving]
  - Toxic skin eruption [Recovering/Resolving]

NARRATIVE: CASE EVENT DATE: 20201215
